FAERS Safety Report 9742238 (Version 2)
Quarter: 2014Q1

REPORT INFORMATION
  Report Type: Spontaneous
  Country: NO (occurrence: NO)
  Receive Date: 20131210
  Receipt Date: 20140130
  Transmission Date: 20141002
  Serious: Yes (Life-Threatening, Hospitalization, Other)
  Sender: FDA-Public Use
  Company Number: NO-JNJFOC-20131117765

PATIENT
  Sex: Male

DRUGS (12)
  1. FENTANYL CITRATE [Suspect]
     Indication: SEDATIVE THERAPY
     Route: 065
  2. HALDOL [Suspect]
     Indication: PRODUCT USED FOR UNKNOWN INDICATION
     Dosage: DAY 3 POSTOPERATIVE 2.5 MG, DAY 5 POST OPERATIVE 4 X 2.5 MG
     Route: 042
  3. HALDOL [Suspect]
     Indication: PRODUCT USED FOR UNKNOWN INDICATION
     Route: 065
  4. DEXDOR [Suspect]
     Indication: SEDATIVE THERAPY
     Route: 065
  5. DEXDOR [Suspect]
     Indication: SEDATIVE THERAPY
     Route: 065
  6. DEXDOR [Suspect]
     Indication: SEDATIVE THERAPY
     Route: 065
  7. DEXDOR [Suspect]
     Indication: SEDATIVE THERAPY
     Route: 065
  8. DEXDOR [Suspect]
     Indication: SEDATIVE THERAPY
     Dosage: 0.7MG/KG/H DECREASED TO 0.3MG/KG/H;0.2 TO 0.7 MG THROUGH OUT THE DAY,DAY 5 POST OP:1.4MG/KG/H
     Route: 065
  9. SOBRIL [Suspect]
     Indication: PRODUCT USED FOR UNKNOWN INDICATION
     Dosage: DOSAGE: 10 TO 15 MG
     Route: 065
  10. MIDAZOLAM [Suspect]
     Indication: SEDATIVE THERAPY
     Dosage: FROM DAY 5 POST OPERATIVE, 6-10 MG/HOUR
     Route: 065
  11. KETORAX [Suspect]
     Indication: PRODUCT USED FOR UNKNOWN INDICATION
     Dosage: DOSAGE:1-2 MG IF NEEDED
     Route: 042
  12. PROPOFOL [Suspect]
     Indication: SEDATION
     Route: 065

REACTIONS (3)
  - Respiratory arrest [Recovering/Resolving]
  - Restlessness [Recovering/Resolving]
  - Bradycardia [Recovering/Resolving]
